FAERS Safety Report 6705999-6 (Version None)
Quarter: 2010Q2

REPORT INFORMATION
  Report Type: 
  Country: None (occurrence: None)
  Receive Date: 20100423
  Receipt Date: 20100111
  Transmission Date: 20101027
  Serious: No
  Sender: FDA-Public Use
  Company Number: ALL1-2010-00140

PATIENT
  Age: 47 Year
  Sex: Male
  Weight: 93 kg

DRUGS (7)
  1. VYVANSE [Suspect]
     Indication: ATTENTION DEFICIT/HYPERACTIVITY DISORDER
     Dosage: 50 MG, 1X/DAY:QD, ORAL;1X/DAY:QD (^55 MG^), ORAL;1X/DAY:QD (^57MG^), ORAL;50 MG, 1X/DAY:QD, ORAL
     Route: 048
     Dates: start: 20100107, end: 20100107
  2. VYVANSE [Suspect]
     Indication: ATTENTION DEFICIT/HYPERACTIVITY DISORDER
     Dosage: 50 MG, 1X/DAY:QD, ORAL;1X/DAY:QD (^55 MG^), ORAL;1X/DAY:QD (^57MG^), ORAL;50 MG, 1X/DAY:QD, ORAL
     Route: 048
     Dates: start: 20100108, end: 20100109
  3. VYVANSE [Suspect]
     Indication: ATTENTION DEFICIT/HYPERACTIVITY DISORDER
     Dosage: 50 MG, 1X/DAY:QD, ORAL;1X/DAY:QD (^55 MG^), ORAL;1X/DAY:QD (^57MG^), ORAL;50 MG, 1X/DAY:QD, ORAL
     Route: 048
     Dates: start: 20100110, end: 20100110
  4. VYVANSE [Suspect]
     Indication: ATTENTION DEFICIT/HYPERACTIVITY DISORDER
     Dosage: 50 MG, 1X/DAY:QD, ORAL;1X/DAY:QD (^55 MG^), ORAL;1X/DAY:QD (^57MG^), ORAL;50 MG, 1X/DAY:QD, ORAL
     Route: 048
     Dates: start: 20100111
  5. TRAZODONE HCL [Concomitant]
  6. NARCAL [Concomitant]
  7. XANAX [Concomitant]

REACTIONS (10)
  - AFFECT LABILITY [None]
  - DECREASED APPETITE [None]
  - DRY MOUTH [None]
  - DYSPNOEA [None]
  - FATIGUE [None]
  - FEELING ABNORMAL [None]
  - HEART RATE INCREASED [None]
  - INSOMNIA [None]
  - INTENTIONAL DRUG MISUSE [None]
  - THIRST [None]
